FAERS Safety Report 8031441-1 (Version None)
Quarter: 2012Q1

REPORT INFORMATION
  Report Type: 
  Country: None (occurrence: None)
  Receive Date: 20120109
  Receipt Date: 20111230
  Transmission Date: 20120608
  Serious: Yes (Other)
  Sender: FDA-Public Use
  Company Number: CHPA2011US018917

PATIENT
  Age: 62 Year
  Sex: Female

DRUGS (4)
  1. INDERAL [Concomitant]
     Dosage: 80 MG, QD
     Route: 048
  2. IBUPROFEN (ADVIL) [Concomitant]
     Indication: MIGRAINE
     Dosage: UNK DF, PRN
     Route: 048
  3. INDERAL [Concomitant]
     Indication: MIGRAINE
     Dosage: 100 MG, QD
     Route: 048
  4. EXCEDRIN TENSION HEADACHE [Suspect]
     Indication: MIGRAINE
     Dosage: 2 DF, Q6H PRN
     Route: 048

REACTIONS (2)
  - INCORRECT DRUG ADMINISTRATION DURATION [None]
  - OSTEOARTHRITIS [None]
